FAERS Safety Report 7480958-7 (Version None)
Quarter: 2011Q2

REPORT INFORMATION
  Report Type: 
  Country: None (occurrence: None)
  Receive Date: 20110506
  Receipt Date: 20110428
  Transmission Date: 20111010
  Serious: Yes (Hospitalization)
  Sender: FDA-Public Use
  Company Number: DSA_45494_2011

PATIENT
  Sex: Male

DRUGS (1)
  1. XENAZINE [Suspect]
     Indication: HUNTINGTON'S DISEASE
     Dosage: (12.5 MG BID ORAL)
     Route: 048
     Dates: start: 20110207, end: 20110225

REACTIONS (4)
  - SUICIDE ATTEMPT [None]
  - INTENTIONAL SELF-INJURY [None]
  - LACERATION [None]
  - INTENTIONAL OVERDOSE [None]
